FAERS Safety Report 7206367-3 (Version None)
Quarter: 2011Q1

REPORT INFORMATION
  Report Type: 
  Country: None (occurrence: None)
  Receive Date: 20110103
  Receipt Date: 20110103
  Transmission Date: 20110831
  Serious: Yes (Hospitalization)
  Sender: FDA-Public Use
  Company Number: PHHO2009DE05236

PATIENT
  Sex: Male
  Weight: 105 kg

DRUGS (1)
  1. CERTICAN [Suspect]
     Indication: CONGENITAL CYSTIC KIDNEY DISEASE
     Dosage: 2.5 MG, QOD
     Route: 048
     Dates: start: 20070417, end: 20090421

REACTIONS (2)
  - RENAL COLIC [None]
  - C-REACTIVE PROTEIN INCREASED [None]
